FAERS Safety Report 26130330 (Version 1)
Quarter: 2025Q4

REPORT INFORMATION
  Report Type: Report from Study
  Country: EU (occurrence: EU)
  Receive Date: 20251208
  Receipt Date: 20251208
  Transmission Date: 20260119
  Serious: Yes (Other)
  Sender: DAIICHI
  Company Number: EU-ASTRAZENECA-202511GLO025954DE

PATIENT
  Sex: Female
  Weight: 79.6 kg

DRUGS (5)
  1. ENHERTU [Suspect]
     Active Substance: FAM-TRASTUZUMAB DERUXTECAN-NXKI
     Indication: Product used for unknown indication
     Dosage: 4.4 MG/KG
     Route: 042
  2. DEXAMETHASONE [Concomitant]
     Active Substance: DEXAMETHASONE
     Indication: Nausea
     Dosage: 4 MG, CYCLE ADMINISTRATION
     Route: 042
     Dates: start: 20250210
  3. LACTULOSE [Concomitant]
     Active Substance: LACTULOSE
     Indication: Product used for unknown indication
     Dosage: DOSE AS NEEDED
     Route: 048
     Dates: start: 20250210
  4. PANTOPRAZOLE [Concomitant]
     Active Substance: PANTOPRAZOLE
     Indication: Pneumonitis
     Dosage: 40 MILLIGRAM, QD
     Route: 048
     Dates: start: 20250818
  5. GRANISETRON [Concomitant]
     Active Substance: GRANISETRON
     Indication: Nausea
     Dosage: 1 MG, CYCLE ADMINISTRATION
     Route: 042
     Dates: start: 20251110

REACTIONS (1)
  - Pneumonia [Not Recovered/Not Resolved]

NARRATIVE: CASE EVENT DATE: 20251126
